FAERS Safety Report 24933078 (Version 1)
Quarter: 2025Q1

REPORT INFORMATION
  Report Type: Spontaneous
  Country: US (occurrence: None)
  Receive Date: 20250206
  Receipt Date: 20250206
  Transmission Date: 20250409
  Serious: No
  Sender: Alvotech
  Company Number: US-ALVOTECHPMS-2025-ALVOTECHPMS-002842

PATIENT
  Age: 55 Year
  Sex: Female

DRUGS (7)
  1. SIMLANDI [Suspect]
     Active Substance: ADALIMUMAB-RYVK
     Indication: Crohn^s disease
     Dosage: 40/0.4 MG/ML, EVERY 14 DAYS
     Dates: start: 20240906
  2. PROAIR HFA [Suspect]
     Active Substance: ALBUTEROL SULFATE
     Indication: Product used for unknown indication
     Route: 055
  3. DITROPAN XL [Concomitant]
     Active Substance: OXYBUTYNIN CHLORIDE
     Dosage: 5MG DAILY
  4. TRAZODONE [Concomitant]
     Active Substance: TRAZODONE HYDROCHLORIDE
     Dosage: 50MG ONCE AT BEDTIME
  5. PROPRANOLOL [Concomitant]
     Active Substance: PROPRANOLOL HYDROCHLORIDE
     Dosage: 40MG ONCE DAILY
  6. AZATHIOPRINE [Concomitant]
     Active Substance: AZATHIOPRINE
     Dosage: 50MG 1 TABLET PER DAY
  7. ESTRADIOL [Concomitant]
     Active Substance: ESTRADIOL
     Route: 067

REACTIONS (7)
  - Nausea [Unknown]
  - Constipation [Unknown]
  - Expired device used [Unknown]
  - Abdominal distension [Unknown]
  - Scar [Unknown]
  - Skin discomfort [Unknown]
  - Dyspepsia [Unknown]
